FAERS Safety Report 11509572 (Version 1)
Quarter: 2015Q3

REPORT INFORMATION
  Report Type: Spontaneous
  Country: US (occurrence: US)
  Receive Date: 20150915
  Receipt Date: 20150915
  Transmission Date: 20151125
  Serious: No
  Sender: FDA-Public Use
  Company Number: US-JNJFOC-20150702308

PATIENT
  Age: 88 Year
  Sex: Female
  Weight: 49.9 kg

DRUGS (3)
  1. TYLENOL REGULAR STRENGTH [Suspect]
     Active Substance: ACETAMINOPHEN
     Indication: PAIN
     Dosage: 2 TABLETS PER DAY-AS NEEDED (AT 7:30-8 PM)
     Route: 048
  2. TYLENOL EXTRA STRENGTH [Suspect]
     Active Substance: ACETAMINOPHEN
     Indication: PAIN
     Dosage: 2 CAPLETS PER DAY-WHEN NEEDED (AT 7:30-8 PM)
     Route: 048
  3. CLONIDINE HCL [Concomitant]
     Active Substance: CLONIDINE HYDROCHLORIDE
     Indication: BLOOD PRESSURE MEASUREMENT
     Dosage: 3 IN AM, 6 IN PM
     Route: 065

REACTIONS (2)
  - Nightmare [Recovered/Resolved]
  - Contraindicated drug administered [Unknown]
